FAERS Safety Report 4869762-3 (Version None)
Quarter: 2005Q4

REPORT INFORMATION
  Report Type: 
  Country: None (occurrence: None)
  Receive Date: 20051227
  Receipt Date: 20051220
  Transmission Date: 20060501
  Serious: Yes (Other)
  Sender: FDA-Public Use
  Company Number: 006292

PATIENT
  Sex: Female

DRUGS (8)
  1. MEDROXYPROGESTERONE ACETATE [Suspect]
     Dosage: SEE IMAGE
     Route: 048
     Dates: start: 19840908, end: 19961027
  2. MEDROXYPROGESTERONE ACETATE [Suspect]
     Dosage: SEE IMAGE
     Route: 048
     Dates: start: 19970310, end: 19970612
  3. PROVERA [Suspect]
     Dosage: SEE IMAGE
     Route: 048
     Dates: start: 19940908, end: 19961027
  4. PROVERA [Suspect]
     Dosage: SEE IMAGE
     Route: 048
     Dates: start: 19970310, end: 19970612
  5. PREMARIN [Suspect]
     Dosage: ORAL
     Route: 048
     Dates: start: 19941012, end: 19961027
  6. PREMPRO [Suspect]
     Dosage: ORAL
     Route: 048
     Dates: start: 19961028, end: 19970309
  7. PREMPRO [Suspect]
     Dosage: ORAL
     Route: 048
     Dates: start: 19970614, end: 20000530
  8. CLIMARA [Suspect]
     Dosage: ORAL
     Route: 048
     Dates: start: 19970310, end: 19970612

REACTIONS (1)
  - BREAST CANCER FEMALE [None]
